FAERS Safety Report 15211628 (Version 1)
Quarter: 2018Q3

REPORT INFORMATION
  Report Type: Spontaneous
  Country: US (occurrence: US)
  Receive Date: 20180702
  Receipt Date: 20180702
  Transmission Date: 20181010
  Serious: Yes (Other)
  Sender: FDA-Public Use
  Company Number: None

PATIENT
  Sex: Female
  Weight: 55.34 kg

DRUGS (13)
  1. ALPROZALAM [Concomitant]
  2. LUMIGAN [Suspect]
     Active Substance: BIMATOPROST
     Indication: GLAUCOMA
     Dosage: ?          QUANTITY:1 DROP(S);?
     Route: 031
     Dates: start: 20110907
  3. ONE?A?DAY NOS [Concomitant]
     Active Substance: MINERALS\VITAMINS
  4. ALPHAGAN P [Suspect]
     Active Substance: BRIMONIDINE TARTRATE
  5. DUREZOL [Suspect]
     Active Substance: DIFLUPREDNATE
     Indication: SCAR
     Dosage: ?          QUANTITY:1 DROP(S);?
     Route: 031
     Dates: start: 20160307, end: 20180406
  6. XALATAN [Suspect]
     Active Substance: LATANOPROST
  7. DORZOLOMIDE [Suspect]
     Active Substance: DORZOLAMIDE
  8. DORZOLOMIDE?TIMOLOL [Concomitant]
  9. ARMOUR THYROID [Concomitant]
     Active Substance: THYROID, PORCINE
  10. VITAMIN B12 [Concomitant]
     Active Substance: CYANOCOBALAMIN
  11. COQ10 [Concomitant]
     Active Substance: UBIDECARENONE
  12. ALPHAGAN P [Concomitant]
     Active Substance: BRIMONIDINE TARTRATE
  13. CALCIUM WITH D AND MAGNESIUM [Concomitant]

REACTIONS (3)
  - Chorioretinal folds [None]
  - Maculopathy [None]
  - Blepharochalasis [None]
